FAERS Safety Report 5930510-7 (Version None)
Quarter: 2008Q4

REPORT INFORMATION
  Report Type: 
  Country: None (occurrence: None)
  Receive Date: 20081026
  Receipt Date: 20081016
  Transmission Date: 20090506
  Serious: Yes (Other)
  Sender: FDA-Public Use
  Company Number: PHHY2008NL25106

PATIENT
  Sex: Female

DRUGS (4)
  1. RITALIN [Suspect]
     Indication: ATTENTION DEFICIT/HYPERACTIVITY DISORDER
     Dosage: 60 MG PER DAY
     Route: 048
     Dates: start: 20040101
  2. RITALIN [Suspect]
     Dosage: 80 MG PER DAY
     Route: 048
     Dates: start: 20060101
  3. RITALIN [Suspect]
     Dosage: 90 MG PER DAY
  4. DICLOFENAC [Concomitant]
     Dosage: 3DD50 MG

REACTIONS (1)
  - BREAST CANCER [None]
